FAERS Safety Report 10775925 (Version 1)
Quarter: 2015Q1

REPORT INFORMATION
  Report Type: Spontaneous
  Country: US (occurrence: None)
  Receive Date: 20150205
  Receipt Date: 20150205
  Transmission Date: 20150721
  Serious: No
  Sender: FDA-Public Use
  Company Number: None

PATIENT
  Age: 68 Year
  Sex: Female
  Weight: 115 kg

DRUGS (1)
  1. ALENDRONATE SODIUM 70 MG TEVA PHARMCEUTICALS [Suspect]
     Active Substance: ALENDRONATE SODIUM
     Indication: OSTEOPOROSIS
     Dosage: TAKEN BY MOUTH
     Dates: start: 20141102, end: 20150104

REACTIONS (5)
  - Abdominal pain [None]
  - Dyspepsia [None]
  - Dysphagia [None]
  - Chest pain [None]
  - Odynophagia [None]

NARRATIVE: CASE EVENT DATE: 20150105
